FAERS Safety Report 10950103 (Version 3)
Quarter: 2016Q3

REPORT INFORMATION
  Report Type: Spontaneous
  Country: US (occurrence: US)
  Receive Date: 20150324
  Receipt Date: 20160819
  Transmission Date: 20161109
  Serious: Yes (Hospitalization, Other)
  Sender: FDA-Public Use
  Company Number: US-009507513-1109USA00866

PATIENT
  Sex: Female
  Weight: 57.6 kg

DRUGS (8)
  1. ALENDRONATE SODIUM. [Suspect]
     Active Substance: ALENDRONATE SODIUM
     Indication: PRODUCT USED FOR UNKNOWN INDICATION
     Dosage: 70 MG, QW
     Route: 048
     Dates: start: 20090312, end: 20101121
  2. VITAMINS (UNSPECIFIED) [Concomitant]
     Active Substance: VITAMINS
     Dosage: UNK, QD
     Dates: start: 19370217
  3. FOSAMAX [Suspect]
     Active Substance: ALENDRONATE SODIUM
     Dosage: UNK UNK, UNKNOWN
     Route: 048
     Dates: end: 200812
  4. FOSAMAX [Suspect]
     Active Substance: ALENDRONATE SODIUM
     Indication: OSTEOPOROSIS
     Dosage: 70 MG, EVERY 2 WEEKS
     Route: 048
     Dates: start: 2002, end: 2010
  5. ALENDRONATE SODIUM. [Suspect]
     Active Substance: ALENDRONATE SODIUM
     Dosage: 75 ML, EVERY 2 WEEKS
     Route: 048
     Dates: start: 20050103, end: 20061103
  6. FOSAMAX PLUS D [Suspect]
     Active Substance: ALENDRONATE SODIUM\CHOLECALCIFEROL
     Indication: PRODUCT USED FOR UNKNOWN INDICATION
     Dosage: 70-2800, EVERY 2 WEEKS
     Route: 048
     Dates: start: 20070216, end: 20080707
  7. FOSAMAX [Suspect]
     Active Substance: ALENDRONATE SODIUM
     Dosage: 70 MG, UNKNOWN
     Route: 048
     Dates: start: 200211, end: 200807
  8. FOSAMAX PLUS D [Suspect]
     Active Substance: ALENDRONATE SODIUM\CHOLECALCIFEROL
     Dosage: 70-2800, QW
     Route: 048
     Dates: start: 20081008, end: 20081224

REACTIONS (17)
  - Haematocrit decreased [Recovered/Resolved]
  - Cystocele [Unknown]
  - Femur fracture [Unknown]
  - Stress fracture [Not Recovered/Not Resolved]
  - Inappropriate schedule of drug administration [Unknown]
  - Headache [Unknown]
  - Constipation [Unknown]
  - Intramedullary rod insertion [Unknown]
  - Inappropriate schedule of drug administration [Unknown]
  - Intramedullary rod insertion [Unknown]
  - Femur fracture [Unknown]
  - Inappropriate schedule of drug administration [Unknown]
  - Diverticulum intestinal [Unknown]
  - Anxiety disorder [Unknown]
  - Back pain [Not Recovered/Not Resolved]
  - Rectocele [Unknown]
  - Haemoglobin decreased [Recovered/Resolved]

NARRATIVE: CASE EVENT DATE: 2002
